FAERS Safety Report 10043948 (Version 2)
Quarter: 2014Q1

REPORT INFORMATION
  Report Type: Spontaneous
  Country: US (occurrence: US)
  Receive Date: 20140328
  Receipt Date: 20140328
  Transmission Date: 20141002
  Serious: No
  Sender: FDA-Public Use
  Company Number: US-MYLANLABS-2013S1010223

PATIENT
  Sex: Female
  Weight: 90.72 kg

DRUGS (4)
  1. EMSAM [Suspect]
     Indication: DEPRESSION
     Route: 062
  2. RITALIN [Suspect]
     Indication: DEPRESSION
  3. RITALIN [Suspect]
     Indication: DEPRESSION
  4. RITALIN [Suspect]
     Indication: DEPRESSION

REACTIONS (3)
  - Blood pressure increased [Recovered/Resolved]
  - Headache [Recovered/Resolved]
  - Depression [Recovered/Resolved]
